FAERS Safety Report 10409829 (Version 1)
Quarter: 2014Q3

REPORT INFORMATION
  Report Type: Spontaneous
  Country: FI (occurrence: FI)
  Receive Date: 20140826
  Receipt Date: 20140826
  Transmission Date: 20150326
  Serious: Yes (Life-Threatening, Hospitalization, Disabling)
  Sender: FDA-Public Use
  Company Number: FI-AMGEN-FINSP2014064439

PATIENT
  Age: 68 Year
  Sex: Male

DRUGS (7)
  1. NEULASTA [Concomitant]
     Active Substance: PEGFILGRASTIM
     Dosage: 6 MG, UNK
  2. IRINOTECAN FRESENIUS KABI [Concomitant]
     Dosage: 20 MG/ML, UNK
  3. CISPLATIN HOSPIRA [Concomitant]
     Dosage: 1 MG/ML, UNK
  4. ZOFRAN                             /00955302/ [Concomitant]
     Dosage: 8 MG, UNK
     Route: 048
  5. ARANESP [Suspect]
     Active Substance: DARBEPOETIN ALFA
     Indication: HAEMOGLOBIN DECREASED
     Dosage: 300 MUG, UNK
     Route: 058
     Dates: start: 20140513
  6. DEXAMETASON                        /00016001/ [Concomitant]
     Dosage: 1.5 MG, UNK
     Route: 048
  7. GASTERIX [Concomitant]
     Dosage: 30 MG, UNK

REACTIONS (3)
  - Unresponsive to stimuli [Not Recovered/Not Resolved]
  - Epilepsy [Not Recovered/Not Resolved]
  - Subdural haematoma [Not Recovered/Not Resolved]

NARRATIVE: CASE EVENT DATE: 20140521
